FAERS Safety Report 24159933 (Version 1)
Quarter: 2024Q3

REPORT INFORMATION
  Report Type: Spontaneous
  Country: US (occurrence: US)
  Receive Date: 20240731
  Receipt Date: 20240731
  Transmission Date: 20241017
  Serious: No
  Sender: APOTEX
  Company Number: US-APOTEX-2024AP008351

PATIENT
  Sex: Female

DRUGS (3)
  1. ETODOLAC [Suspect]
     Active Substance: ETODOLAC
     Indication: Flank pain
     Dosage: 400 MILLIGRAM, BID
     Route: 065
     Dates: start: 20240605
  2. ETODOLAC [Suspect]
     Active Substance: ETODOLAC
     Indication: Inflammation
  3. SIMVASTATIN [Concomitant]
     Active Substance: SIMVASTATIN
     Indication: Product used for unknown indication
     Dosage: 20 MILLIGRAM, Q.H.S.
     Route: 065

REACTIONS (2)
  - Alopecia [Not Recovered/Not Resolved]
  - Drug ineffective [Unknown]

NARRATIVE: CASE EVENT DATE: 20240610
